FAERS Safety Report 6441094-1 (Version None)
Quarter: 2009Q4

REPORT INFORMATION
  Report Type: 
  Country: None (occurrence: None)
  Receive Date: 20091116
  Receipt Date: 20091109
  Transmission Date: 20100525
  Serious: Yes (Death)
  Sender: FDA-Public Use
  Company Number: KR-ROCHE-667927

PATIENT
  Age: 57 Year
  Sex: Male

DRUGS (1)
  1. MEFLOQUINE HYDROCHLORIDE [Suspect]
     Route: 065
     Dates: start: 20070123

REACTIONS (1)
  - PLASMODIUM FALCIPARUM INFECTION [None]
